FAERS Safety Report 5340053-X (Version None)
Quarter: 2007Q2

REPORT INFORMATION
  Report Type: 
  Country: None (occurrence: None)
  Receive Date: 20070531
  Receipt Date: 20070523
  Transmission Date: 20071010
  Serious: Yes (Hospitalization)
  Sender: FDA-Public Use
  Company Number: SE-ASTRAZENECA-2007SE02404

PATIENT
  Age: 62 Year
  Sex: Female

DRUGS (12)
  1. NAROPIN [Suspect]
     Indication: LOCAL ANAESTHESIA
     Dosage: EXTRA TECAL, DOSAGE REGIMEN: 5 ML
     Route: 008
     Dates: start: 20061212, end: 20061214
  2. SUFENTANIL CITRATE [Concomitant]
     Dates: start: 20061212, end: 20061213
  3. DOXYFERM [Concomitant]
     Dates: start: 20061210, end: 20061211
  4. FASIGYN [Concomitant]
     Dates: start: 20061210, end: 20061211
  5. FRAGMIN [Concomitant]
     Dates: start: 20061210
  6. ALVEDON [Concomitant]
     Dates: start: 20061212
  7. PRIMPERAN INJ [Concomitant]
     Dates: start: 20061211
  8. MAGNESIUMOXID [Concomitant]
     Dates: start: 20061211, end: 20061214
  9. FURIX [Concomitant]
     Dosage: T/INJ 5-20 MG
     Dates: start: 20061213, end: 20061215
  10. VOLTAREN [Concomitant]
     Dosage: 50 MG X 2
     Dates: start: 20061214, end: 20061215
  11. MORFIN [Concomitant]
     Dates: start: 20061214, end: 20061214
  12. BEHEPAN [Concomitant]
     Dates: start: 20061218

REACTIONS (2)
  - PARAPARESIS [None]
  - SENSORY DISTURBANCE [None]
